FAERS Safety Report 13800914 (Version 1)
Quarter: 2017Q3

REPORT INFORMATION
  Report Type: Spontaneous
  Country: CA (occurrence: CA)
  Receive Date: 20170727
  Receipt Date: 20170727
  Transmission Date: 20171127
  Serious: Yes (Hospitalization)
  Sender: FDA-Public Use
  Company Number: CA-PFIZER INC-1481644

PATIENT
  Age: 39 Year
  Sex: Male
  Weight: 95.9 kg

DRUGS (15)
  1. BENADRYL [Concomitant]
     Active Substance: DIPHENHYDRAMINE HYDROCHLORIDE
     Indication: INFUSION RELATED REACTION
     Dosage: NOT REPORTED, NOT REPORTED
     Dates: start: 20120424, end: 20120919
  2. CLAVULIN /00756801/ [Concomitant]
     Active Substance: AMOXICILLIN\CLAVULANIC ACID
     Indication: PRODUCT USED FOR UNKNOWN INDICATION
     Dosage: NOT REPORTED, NOT REPORTED
     Dates: start: 20121018
  3. VESICARE [Concomitant]
     Active Substance: SOLIFENACIN SUCCINATE
     Indication: URINARY INCONTINENCE
     Dosage: NOT REPORTED, NOT REPORTED
     Dates: start: 20121214, end: 20130130
  4. CIPRO [Concomitant]
     Active Substance: CIPROFLOXACIN HYDROCHLORIDE
     Indication: URINARY TRACT INFECTION
     Dosage: NOT REPORTED, NOT REPORTED
     Dates: start: 20120912
  5. VINCRISTINE SULFATE. [Suspect]
     Active Substance: VINCRISTINE SULFATE
     Indication: DIFFUSE LARGE B-CELL LYMPHOMA
     Dosage: 2 MG, LAST DOSE TAKEN, FREQ: 1 WEEK; INTERVAL: 3.
     Route: 042
     Dates: start: 20120424, end: 20120808
  6. CYCLOPHOSPHAMIDE. [Suspect]
     Active Substance: CYCLOPHOSPHAMIDE
     Indication: DIFFUSE LARGE B-CELL LYMPHOMA
     Dosage: 1575 MG, LAST DOSE TAKEN, FREQ: 1 WEEK; INTERVAL: 3.
     Route: 042
     Dates: start: 20120424, end: 20120808
  7. BENADRYL [Concomitant]
     Active Substance: DIPHENHYDRAMINE HYDROCHLORIDE
     Indication: VOMITING
     Dosage: NOT REPORTED, NOT REPORTED
     Dates: start: 20120829, end: 20120829
  8. STEMETIL /00013301/ [Concomitant]
     Active Substance: PROCHLORPERAZINE
     Indication: NAUSEA
     Dosage: NOT REPORTED, NOT REPORTED
     Dates: start: 20120424
  9. VIBRAMYCINE [Concomitant]
     Indication: PRODUCT USED FOR UNKNOWN INDICATION
     Dosage: NOT REPORTED, NOT REPORTED
  10. CEFTRIAXONE SODIUM. [Concomitant]
     Active Substance: CEFTRIAXONE SODIUM
     Indication: PRODUCT USED FOR UNKNOWN INDICATION
     Dosage: NOT REPORTED, NOT REPORTED
     Route: 042
     Dates: start: 20120928
  11. RITUXIMAB. [Suspect]
     Active Substance: RITUXIMAB
     Indication: DIFFUSE LARGE B-CELL LYMPHOMA
     Dosage: VOLUME OF LAST DOSE TAKEN:250 ML,DOSE CONCENTRATION 787.5 MG/ML, FREQ: 1 WEEK; INTERVAL: 3.
     Route: 042
     Dates: start: 20120424
  12. TYLENOL /00020001 [Concomitant]
     Indication: INFUSION RELATED REACTION
     Dosage: NOT REPORTED, NOT REPORTED
     Dates: start: 20120424, end: 20120919
  13. CIPRO [Concomitant]
     Active Substance: CIPROFLOXACIN HYDROCHLORIDE
     Dosage: NOT REPORTED, NOT REPORTED
     Dates: start: 20121018
  14. DOXORUBICIN [Suspect]
     Active Substance: DOXORUBICIN
     Indication: DIFFUSE LARGE B-CELL LYMPHOMA
     Dosage: 105 MG, LAST DOSE TAKEN, FREQ: 1 WEEK; INTERVAL: 3.
     Route: 042
     Dates: start: 20120424, end: 20120808
  15. PREDNISONE. [Suspect]
     Active Substance: PREDNISONE
     Indication: DIFFUSE LARGE B-CELL LYMPHOMA
     Dosage: 100 MG, LAST DOSE TAKEN,DATE OF MOST RECENT DOSE: 19 SEP2012, FREQ: 1 WEEK; INTERVAL: 3.
     Route: 048
     Dates: start: 20120424

REACTIONS (3)
  - Orchitis [Recovering/Resolving]
  - Scrotal abscess [Recovered/Resolved]
  - Prostatic abscess [Recovered/Resolved]

NARRATIVE: CASE EVENT DATE: 20120928
